FAERS Safety Report 8041133 (Version 13)
Quarter: 2015Q1

REPORT INFORMATION
  Report Type: Report from Study
  Country: CA (occurrence: CA)
  Receive Date: 20110717
  Receipt Date: 20150302
  Transmission Date: 20150721
  Serious: Yes (Other)
  Sender: FDA-Public Use
  Company Number: PHHY2011CA35901

PATIENT
  Age: 61 Year
  Sex: Female

DRUGS (3)
  1. SANDOSTATIN LAR DEPOT [Suspect]
     Active Substance: OCTREOTIDE ACETATE
     Dosage: 30 MG, QMO
     Route: 030
  2. SANDOSTATIN LAR DEPOT [Suspect]
     Active Substance: OCTREOTIDE ACETATE
     Indication: NEUROENDOCRINE TUMOUR
     Dosage: 20 MG, QMO
     Route: 030
     Dates: start: 20110308
  3. ATENOLOL. [Concomitant]
     Active Substance: ATENOLOL
     Indication: PRODUCT USED FOR UNKNOWN INDICATION
     Dosage: 50 MG, UNK
     Route: 065

REACTIONS (24)
  - Hyperhidrosis [Unknown]
  - Alopecia [Unknown]
  - Faeces pale [Unknown]
  - Dizziness [Unknown]
  - Injection site mass [Recovered/Resolved]
  - Lower respiratory tract infection [Unknown]
  - Abdominal distension [Unknown]
  - Nausea [Unknown]
  - Abdominal pain [Unknown]
  - Heart rate increased [Unknown]
  - Injection site pain [Unknown]
  - Diabetes mellitus [Unknown]
  - Fatigue [Unknown]
  - Memory impairment [Unknown]
  - Dyspnoea [Unknown]
  - Hair growth abnormal [Unknown]
  - Nasopharyngitis [Unknown]
  - Diarrhoea [Unknown]
  - Injection site bruising [Unknown]
  - Blood pressure increased [Unknown]
  - Arthralgia [Unknown]
  - Back pain [Unknown]
  - Faeces soft [Unknown]
  - Headache [Unknown]

NARRATIVE: CASE EVENT DATE: 20110627
